FAERS Safety Report 12163932 (Version 1)
Quarter: 2016Q1

REPORT INFORMATION
  Report Type: Spontaneous
  Country: US (occurrence: US)
  Receive Date: 20160309
  Receipt Date: 20160309
  Transmission Date: 20160526
  Serious: Yes (Hospitalization, Other)
  Sender: FDA-Public Use
  Company Number: US-SMITH AND NEPHEW, INC-2016SMT00178

PATIENT
  Age: 82 Year
  Sex: Male
  Weight: 120.18 kg

DRUGS (3)
  1. COUMADIN [Suspect]
     Active Substance: WARFARIN SODIUM
  2. REGRANEX [Suspect]
     Active Substance: BECAPLERMIN
     Indication: WOUND
     Dosage: UNK, 1X/DAY
     Route: 061
  3. REGRANEX [Suspect]
     Active Substance: BECAPLERMIN
     Dosage: UNK, EVERY 48 HOURS
     Route: 061

REACTIONS (7)
  - Infected bunion [Unknown]
  - Osteomyelitis [Unknown]
  - Off label use [Unknown]
  - Bunion operation [Recovered/Resolved with Sequelae]
  - Incorrect drug administration duration [Unknown]
  - Inappropriate schedule of drug administration [Unknown]
  - Anticoagulation drug level abnormal [Unknown]

NARRATIVE: CASE EVENT DATE: 201602
